FAERS Safety Report 7322269-6 (Version None)
Quarter: 2011Q1

REPORT INFORMATION
  Report Type: 
  Country: None (occurrence: None)
  Receive Date: 20110301
  Receipt Date: 20110218
  Transmission Date: 20110831
  Serious: No
  Sender: FDA-Public Use
  Company Number: US-BIOGENIDEC-2011BI002079

PATIENT
  Age: 58 Year
  Sex: Female

DRUGS (2)
  1. TYSABRI [Suspect]
     Indication: MULTIPLE SCLEROSIS
     Route: 042
     Dates: start: 20101207
  2. AVONEX [Concomitant]
     Route: 030
     Dates: start: 20081224

REACTIONS (4)
  - ARTHRALGIA [None]
  - WEIGHT INCREASED [None]
  - SWELLING [None]
  - ANGER [None]
